FAERS Safety Report 4551079-8 (Version None)
Quarter: 2005Q1

REPORT INFORMATION
  Report Type: 
  Country: None (occurrence: None)
  Receive Date: 20050113
  Receipt Date: 20040504
  Transmission Date: 20050727
  Serious: Yes (Other)
  Sender: FDA-Public Use
  Company Number: US-BRISTOL-MYERS SQUIBB COMPANY-12579165

PATIENT
  Age: 74 Year
  Sex: Male
  Weight: 74 kg

DRUGS (4)
  1. IFEX [Suspect]
     Indication: OSTEOSARCOMA METASTATIC
     Dosage: FOR 4 DAYS CONSECUTIVELY OVER 3 HOUR INFUSION PERIOD
     Route: 042
     Dates: start: 20040301
  2. ANZEMET [Concomitant]
     Indication: PREMEDICATION
  3. DECADRON [Concomitant]
     Indication: PREMEDICATION
  4. ADALAT [Concomitant]

REACTIONS (1)
  - CONFUSIONAL STATE [None]
